FAERS Safety Report 19193196 (Version 1)
Quarter: 2021Q2

REPORT INFORMATION
  Report Type: Spontaneous
  Country: CA (occurrence: CA)
  Receive Date: 20210428
  Receipt Date: 20210428
  Transmission Date: 20210717
  Serious: Yes (Hospitalization)
  Sender: FDA-Public Use
  Company Number: CA-009507513-2104CAN006931

PATIENT
  Age: 37 Year
  Sex: Female
  Weight: 37 kg

DRUGS (1)
  1. ZERBAXA [Suspect]
     Active Substance: CEFTOLOZANE SULFATE\TAZOBACTAM SODIUM
     Dosage: 1 DOSAGE FORM, Q8H
     Route: 042

REACTIONS (1)
  - Myelosuppression [Recovered/Resolved]
